FAERS Safety Report 9482232 (Version 1)
Quarter: 2013Q3

REPORT INFORMATION
  Report Type: Report from Study
  Country: PA (occurrence: PA)
  Receive Date: 20130828
  Receipt Date: 20130828
  Transmission Date: 20140515
  Serious: Yes (Hospitalization)
  Sender: FDA-Public Use
  Company Number: PA-ROCHE-1266833

PATIENT
  Age: 69 Year
  Sex: Female

DRUGS (6)
  1. BONVIVA [Suspect]
     Indication: OSTEOPOROSIS
     Route: 048
     Dates: start: 20120403
  2. VERAPAMIL [Concomitant]
     Indication: HYPERTENSION
  3. OMEPRAZOLE [Concomitant]
     Indication: GASTRITIS
  4. METFORMIN [Concomitant]
     Indication: DIABETES MELLITUS
     Route: 065
  5. SIMVASTATIN [Concomitant]
  6. WARFARIN [Concomitant]
     Indication: CARDIOVASCULAR DISORDER

REACTIONS (2)
  - Myocardial infarction [Recovered/Resolved]
  - Asthmatic crisis [Recovered/Resolved]
